FAERS Safety Report 25390057 (Version 1)
Quarter: 2025Q2

REPORT INFORMATION
  Report Type: Spontaneous
  Country: US (occurrence: None)
  Receive Date: 20250602
  Receipt Date: 20250602
  Transmission Date: 20250716
  Serious: Yes (Life-Threatening, Hospitalization)
  Sender: FDA-CTU
  Company Number: None

PATIENT
  Age: 50 Year
  Sex: Female
  Weight: 110.5 kg

DRUGS (6)
  1. SEMAGLUTIDE [Suspect]
     Active Substance: SEMAGLUTIDE
     Indication: Weight decreased
     Dates: start: 20250525
  2. bupropion XL 75 mg [Concomitant]
  3. montelukast 10 mg nightly [Concomitant]
  4. valsartan 40 mg daily [Concomitant]
  5. busedonide/formoterol 160-4.5 mcg inhaler [Concomitant]
  6. Abulterol 90 mcg inhaler [Concomitant]

REACTIONS (2)
  - Angioedema [None]
  - Incorrect dose administered [None]

NARRATIVE: CASE EVENT DATE: 20250526
